FAERS Safety Report 8251911-0 (Version None)
Quarter: 2012Q2

REPORT INFORMATION
  Report Type: 
  Country: None (occurrence: None)
  Receive Date: 20120402
  Receipt Date: 20120326
  Transmission Date: 20120825
  Serious: Yes (Disabling, Other)
  Sender: FDA-Public Use
  Company Number: JP-PFIZER INC-2012076580

PATIENT
  Age: 58 Year
  Sex: Female

DRUGS (1)
  1. SOLU-MEDROL [Suspect]
     Dosage: UNK
     Dates: start: 19861201, end: 19870101

REACTIONS (3)
  - OSTEONECROSIS [None]
  - MOTOR DYSFUNCTION [None]
  - ARTHRITIS [None]
